FAERS Safety Report 7095412-4 (Version None)
Quarter: 2010Q4

REPORT INFORMATION
  Report Type: 
  Country: None (occurrence: None)
  Receive Date: 20101111
  Receipt Date: 20101109
  Transmission Date: 20110411
  Serious: Yes (Hospitalization)
  Sender: FDA-Public Use
  Company Number: JP-BRISTOL-MYERS SQUIBB COMPANY-15350051

PATIENT
  Age: 64 Year
  Sex: Male
  Weight: 70 kg

DRUGS (9)
  1. ABILIFY [Suspect]
     Indication: SCHIZOPHRENIA
     Dosage: 08JUN-30AUG10(84DAYS),27MG 30AUG-4OCT10(35DAYS),24MG 5OCT-12OCT10(8DAYS),30MG 12-13OCT10(2DAYS).
     Route: 048
     Dates: start: 20101005, end: 20101012
  2. RISPERIDONE [Suspect]
     Indication: SCHIZOPHRENIA
     Dosage: TABLET
     Route: 048
     Dates: start: 20101013
  3. ZOLPIDEM TARTRATE [Suspect]
     Indication: INSOMNIA
     Dosage: TABLET
     Route: 048
     Dates: start: 20101013
  4. BIPERIDEN HYDROCHLORIDE TAB [Suspect]
     Indication: PROPHYLAXIS
     Dosage: TABLET
     Route: 048
     Dates: start: 20101013
  5. VEGETAMIN-B [Suspect]
     Indication: INSOMNIA
     Dosage: TABLET
     Route: 048
     Dates: start: 20101013
  6. BROTIZOLAM [Suspect]
     Indication: INSOMNIA
     Route: 048
     Dates: start: 20101013
  7. DEPAS [Concomitant]
     Dates: start: 20100831
  8. POLARAMINE [Concomitant]
     Dates: start: 20101012
  9. SELBEX [Concomitant]
     Dates: start: 20080826

REACTIONS (2)
  - INSOMNIA [None]
  - SCHIZOPHRENIA [None]
